FAERS Safety Report 8092386-4 (Version None)
Quarter: 2012Q1

REPORT INFORMATION
  Report Type: 
  Country: None (occurrence: None)
  Receive Date: 20120128
  Receipt Date: 20110831
  Transmission Date: 20120608
  Serious: No
  Sender: FDA-Public Use
  Company Number: US-ABBOTT-11P-163-0850859-00

PATIENT
  Age: 54 Year
  Sex: Female

DRUGS (1)
  1. HUMIRA [Suspect]
     Indication: PSORIASIS
     Dates: start: 20110601

REACTIONS (9)
  - INJECTION SITE HAEMORRHAGE [None]
  - INJECTION SITE VESICLES [None]
  - PALPITATIONS [None]
  - ANXIETY [None]
  - PARAESTHESIA [None]
  - INJECTION SITE PAIN [None]
  - DEVICE MALFUNCTION [None]
  - PSORIASIS [None]
  - INCORRECT DOSE ADMINISTERED [None]
